FAERS Safety Report 19460788 (Version 3)
Quarter: 2021Q3

REPORT INFORMATION
  Report Type: Spontaneous
  Country: US (occurrence: US)
  Receive Date: 20210625
  Receipt Date: 20210916
  Transmission Date: 20211014
  Serious: Yes (Hospitalization, Other)
  Sender: FDA-Public Use
  Company Number: US-JNJFOC-20210648018

PATIENT
  Age: 71 Year
  Sex: Male
  Weight: 68.1 kg

DRUGS (3)
  1. HALDOL DECANOATE [Suspect]
     Active Substance: HALOPERIDOL DECANOATE
     Indication: SCHIZOPHRENIA
     Route: 030
     Dates: start: 1995, end: 20200108
  2. HALDOL DECANOATE [Suspect]
     Active Substance: HALOPERIDOL DECANOATE
     Route: 030
     Dates: start: 1995
  3. HALDOL DECANOATE [Suspect]
     Active Substance: HALOPERIDOL DECANOATE
     Dosage: 4 TO 5 YEARS
     Route: 030
     Dates: start: 1995

REACTIONS (7)
  - Injection site haemorrhage [Not Recovered/Not Resolved]
  - Lethargy [Unknown]
  - Hospitalisation [Not Recovered/Not Resolved]
  - Wrong technique in product usage process [Unknown]
  - Schizophrenia [Unknown]
  - Aneurysm [Not Recovered/Not Resolved]
  - Cognitive disorder [Unknown]

NARRATIVE: CASE EVENT DATE: 201810
